FAERS Safety Report 18567089 (Version 2)
Quarter: 2020Q4

REPORT INFORMATION
  Report Type: Other
  Country: JP (occurrence: JP)
  Receive Date: 20201202
  Receipt Date: 20201204
  Transmission Date: 20210114
  Serious: Yes (Other)
  Sender: FDA-Public Use
  Company Number: JP-ROCHE-2724323

PATIENT
  Age: 3 Decade
  Sex: Female

DRUGS (2)
  1. CELLCEPT [Suspect]
     Active Substance: MYCOPHENOLATE MOFETIL\MYCOPHENOLATE MOFETIL HYDROCHLORIDE
     Indication: PROPHYLAXIS AGAINST TRANSPLANT REJECTION
     Dosage: DOSAGE IS UNCERTAIN.
     Route: 048
  2. RITUXIMAB. [Concomitant]
     Active Substance: RITUXIMAB
     Indication: PROPHYLAXIS AGAINST TRANSPLANT REJECTION
     Dosage: DOSE INTERVAL UNCERTAINTY
     Route: 065

REACTIONS (3)
  - Intentional product use issue [Unknown]
  - Off label use [Unknown]
  - Thrombotic microangiopathy [Recovering/Resolving]
